FAERS Safety Report 10697382 (Version 1)
Quarter: 2015Q1

REPORT INFORMATION
  Report Type: Spontaneous
  Country: US (occurrence: US)
  Receive Date: 20150108
  Receipt Date: 20150108
  Transmission Date: 20150721
  Serious: Yes (Other)
  Sender: FDA-Public Use
  Company Number: US-THROMBOGENICS NV-SPO-2014-1631

PATIENT
  Sex: Female

DRUGS (1)
  1. JETREA [Suspect]
     Active Substance: OCRIPLASMIN
     Indication: MACULAR HOLE
     Dosage: 0.125 MG, ONE TIME DOSE
     Route: 031

REACTIONS (9)
  - Off label use [Unknown]
  - Photophobia [Unknown]
  - Blindness transient [Recovered/Resolved]
  - Eye pain [Unknown]
  - Photopsia [Unknown]
  - Surgical failure [Not Recovered/Not Resolved]
  - Visual impairment [Recovered/Resolved]
  - Metamorphopsia [Not Recovered/Not Resolved]
  - Drug ineffective for unapproved indication [Unknown]
